FAERS Safety Report 25138475 (Version 1)
Quarter: 2025Q1

REPORT INFORMATION
  Report Type: Spontaneous
  Country: HR (occurrence: HR)
  Receive Date: 20250330
  Receipt Date: 20250330
  Transmission Date: 20250409
  Serious: Yes (Other)
  Sender: SANOFI AVENTIS
  Company Number: None

PATIENT
  Age: 49 Year
  Sex: Male

DRUGS (3)
  1. ZOLPIDEM TARTRATE [Suspect]
     Active Substance: ZOLPIDEM TARTRATE
     Indication: Product used for unknown indication
     Dosage: 20 MG, QD (ADR IS ADEQUATELY LABELED: UNCONSCIOUSADR IS NOT ADEQUATELY LABELLED: BLOOD GLUCOSE DECRE
     Route: 048
     Dates: start: 20250203, end: 20250203
  2. BROMAZEPAM [Suspect]
     Active Substance: BROMAZEPAM
     Indication: Product used for unknown indication
     Dosage: 6 MG, QD (ADR IS ADEQUATELY LABELED: UNCONSCIOUSADR IS NOT ADEQUATELY LABELLED: BLOOD GLUCOSE DECREA
     Route: 048
     Dates: start: 20250203, end: 20250203
  3. INSULIN NOS [Suspect]
     Active Substance: INSULIN NOS
     Indication: Product used for unknown indication
     Dosage: 5 DF, QD (1 {DF} = 1 INJECTIONTHE INJECTIONS WERE NOT COMPLETELY EMPTIED AS THERE WAS STILL SOME INS
     Route: 058
     Dates: start: 20250203, end: 20250203

REACTIONS (4)
  - Blood glucose decreased [Unknown]
  - Loss of consciousness [Unknown]
  - Suicide attempt [Unknown]
  - Intentional overdose [Unknown]

NARRATIVE: CASE EVENT DATE: 20250203
